FAERS Safety Report 18631154 (Version 1)
Quarter: 2020Q4

REPORT INFORMATION
  Report Type: Spontaneous
  Country: US (occurrence: US)
  Receive Date: 20201217
  Receipt Date: 20201217
  Transmission Date: 20210114
  Serious: Yes (Death, Other)
  Sender: FDA-Public Use
  Company Number: US-PURDUE-USA-2020-0181959

PATIENT
  Age: 41 Year
  Sex: Male

DRUGS (2)
  1. OXYCODONE/ ACETAMINOPHEN TABLETS [Suspect]
     Active Substance: ACETAMINOPHEN\OXYCODONE HYDROCHLORIDE
     Indication: BACK INJURY
     Route: 048
  2. FENTANYL. [Suspect]
     Active Substance: FENTANYL
     Indication: PRODUCT USED FOR UNKNOWN INDICATION
     Route: 065

REACTIONS (7)
  - Hepatic cirrhosis [Unknown]
  - Pulmonary congestion [None]
  - Hypertension [Fatal]
  - Oedema [Unknown]
  - Drug dependence [Fatal]
  - Overdose [Fatal]
  - Arteriosclerosis coronary artery [Fatal]

NARRATIVE: CASE EVENT DATE: 20191016
